FAERS Safety Report 13714121 (Version 1)
Quarter: 2017Q3

REPORT INFORMATION
  Report Type: Spontaneous
  Country: US (occurrence: US)
  Receive Date: 20170704
  Receipt Date: 20170704
  Transmission Date: 20171127
  Serious: No
  Sender: FDA-Public Use
  Company Number: US-TAKEDA-2017TUS014128

PATIENT
  Age: 36 Year
  Sex: Female
  Weight: 70.75 kg

DRUGS (7)
  1. S-ADENOSYLMETHIONINE SULFATE P-TOLUENESULFONATE [Concomitant]
     Active Substance: ADEMETIONINE SULFATE TOSILATE
     Indication: SUPPLEMENTATION THERAPY
     Dosage: UNK UNK, QD
     Route: 048
     Dates: start: 20170616
  2. TRINTELLIX [Suspect]
     Active Substance: VORTIOXETINE HYDROBROMIDE
     Indication: MAJOR DEPRESSION
     Dosage: 10 MG, QD
     Route: 048
     Dates: start: 20170523, end: 20170525
  3. LEXAPRO [Suspect]
     Active Substance: ESCITALOPRAM OXALATE
     Indication: MAJOR DEPRESSION
     Dosage: UNK
     Route: 048
     Dates: end: 20170526
  4. TRINTELLIX [Suspect]
     Active Substance: VORTIOXETINE HYDROBROMIDE
     Dosage: 20 MG, QD
     Route: 048
     Dates: start: 20170526
  5. ALPRAZOLAM. [Concomitant]
     Active Substance: ALPRAZOLAM
     Indication: FEELING OF RELAXATION
     Dosage: 2 MG, QID
     Route: 048
  6. NEUROLINK [Concomitant]
     Dosage: UNK UNK, BID
     Route: 048
     Dates: start: 201706
  7. NEUROLINK [Concomitant]
     Indication: SUPPLEMENTATION THERAPY
     Dosage: UNK UNK, QID
     Route: 048
     Dates: start: 20170616

REACTIONS (2)
  - Nausea [Recovering/Resolving]
  - Drug ineffective [Unknown]

NARRATIVE: CASE EVENT DATE: 201706
